FAERS Safety Report 9792776 (Version 1)
Quarter: 2014Q1

REPORT INFORMATION
  Report Type: Spontaneous
  Country: US (occurrence: US)
  Receive Date: 20140102
  Receipt Date: 20140102
  Transmission Date: 20141002
  Serious: No
  Sender: FDA-Public Use
  Company Number: US-TEVA-453695USA

PATIENT
  Age: 60 Year
  Sex: Female
  Weight: 62.65 kg

DRUGS (2)
  1. NUVIGIL [Suspect]
     Indication: INSOMNIA
     Dosage: 1/2 TABLET IN THE MORNING
     Dates: start: 201312
  2. OTHER MEDICATIONS [Concomitant]

REACTIONS (2)
  - Fatigue [Unknown]
  - Off label use [Unknown]
